FAERS Safety Report 5475956-9 (Version None)
Quarter: 2007Q4

REPORT INFORMATION
  Report Type: 
  Country: None (occurrence: None)
  Receive Date: 20071003
  Receipt Date: 20070924
  Transmission Date: 20080405
  Serious: Yes (Life-Threatening)
  Sender: FDA-Public Use
  Company Number: GR-ELI_LILLY_AND_COMPANY-GR200709005383

PATIENT
  Age: 23 Year
  Sex: Female

DRUGS (2)
  1. CECLOR [Suspect]
     Dosage: 750 MG, 2/D
     Route: 048
     Dates: start: 20070910, end: 20070910
  2. CECLOR [Suspect]
     Dosage: 750 MG, 2/D
     Route: 048
     Dates: start: 20070801, end: 20070901

REACTIONS (1)
  - ANAPHYLACTIC SHOCK [None]
